FAERS Safety Report 6857293-0 (Version None)
Quarter: 2010Q3

REPORT INFORMATION
  Report Type: 
  Country: None (occurrence: None)
  Receive Date: 20100719
  Receipt Date: 20100707
  Transmission Date: 20110219
  Serious: Yes (Other)
  Sender: FDA-Public Use
  Company Number: US-PFIZER INC-2010085631

PATIENT
  Sex: Female
  Weight: 118 kg

DRUGS (7)
  1. CHANTIX [Suspect]
     Indication: SMOKING CESSATION THERAPY
     Dosage: 1 MG, 2X/DAY
     Route: 048
     Dates: start: 20100101
  2. THYROID TAB [Concomitant]
     Indication: AUTOIMMUNE THYROIDITIS
     Dosage: 90 UG, 1X/DAY
     Route: 048
  3. ZYRTEC [Concomitant]
     Indication: HYPERSENSITIVITY
     Dosage: 10 MG, 1X/DAY
     Route: 048
     Dates: start: 20100101
  4. ALBUTEROL SULFATE [Concomitant]
     Indication: ASTHMA
     Dosage: UNK
     Dates: start: 20100101
  5. MAGNESIUM [Concomitant]
     Indication: SEDATIVE THERAPY
     Dosage: UNK
  6. FISH OIL [Concomitant]
     Dosage: UNK
  7. 5-HYDROXYTRYPTOPHAN [Concomitant]
     Indication: SEDATIVE THERAPY
     Dosage: 100 MG, UNK

REACTIONS (2)
  - MOOD SWINGS [None]
  - NERVOUSNESS [None]
